FAERS Safety Report 16111113 (Version 1)
Quarter: 2019Q1

REPORT INFORMATION
  Report Type: Spontaneous
  Country: US (occurrence: US)
  Receive Date: 20190220
  Receipt Date: 20190220
  Transmission Date: 20190418
  Serious: Yes (Hospitalization)
  Sender: FDA-Public Use
  Company Number: None

PATIENT
  Age: 79 Year
  Sex: Male
  Weight: 75 kg

DRUGS (2)
  1. MORPHINE [Suspect]
     Active Substance: MORPHINE
     Dosage: ?          OTHER FREQUENCY:OTHER;?
     Route: 048
     Dates: start: 20190124, end: 20190129
  2. MORPHINE [Suspect]
     Active Substance: MORPHINE
     Route: 048
     Dates: start: 20190124, end: 20190129

REACTIONS (6)
  - Unresponsive to stimuli [None]
  - Sedation [None]
  - Miosis [None]
  - Mental status changes [None]
  - Hypersomnia [None]
  - Confusional state [None]

NARRATIVE: CASE EVENT DATE: 20190129
